FAERS Safety Report 14230345 (Version 2)
Quarter: 2017Q4

REPORT INFORMATION
  Report Type: Report from Study
  Country: US (occurrence: US)
  Receive Date: 20171128
  Receipt Date: 20171128
  Transmission Date: 20180321
  Serious: Yes (Hospitalization)
  Sender: FDA-Public Use
  Company Number: US-BAYER-2017-228905

PATIENT
  Age: 0 Year
  Sex: Male

DRUGS (1)
  1. BETASERON [Suspect]
     Active Substance: INTERFERON BETA-1B
     Indication: RELAPSING-REMITTING MULTIPLE SCLEROSIS
     Dosage: 8 MIU, QOD
     Route: 064
     Dates: start: 20150701, end: 20170101

REACTIONS (3)
  - Dyspnoea [None]
  - Lung disorder [None]
  - Foetal exposure during pregnancy [None]

NARRATIVE: CASE EVENT DATE: 20170101
